FAERS Safety Report 6953031-1 (Version None)
Quarter: 2010Q3

REPORT INFORMATION
  Report Type: 
  Country: None (occurrence: None)
  Receive Date: 20100829
  Receipt Date: 20100601
  Transmission Date: 20110219
  Serious: No
  Sender: FDA-Public Use
  Company Number: US-ABBOTT-10P-163-0647263-00

PATIENT
  Sex: Male
  Weight: 99.88 kg

DRUGS (5)
  1. NIASPAN [Suspect]
     Indication: BLOOD TRIGLYCERIDES INCREASED
     Route: 048
     Dates: start: 20100514, end: 20100521
  2. ASPIRIN [Concomitant]
     Indication: FLUSHING
     Route: 048
     Dates: start: 20100517
  3. ASPIRIN [Concomitant]
     Indication: PROPHYLAXIS
  4. AMOXICILLIN [Concomitant]
     Indication: PNEUMONIA
     Route: 048
     Dates: start: 20100515
  5. AUGMENTIN '125' [Concomitant]
     Indication: BRONCHITIS
     Route: 048
     Dates: start: 20100513

REACTIONS (3)
  - ASTHENIA [None]
  - COUGH [None]
  - MIDDLE INSOMNIA [None]
